FAERS Safety Report 10250780 (Version 1)
Quarter: 2014Q2

REPORT INFORMATION
  Report Type: Spontaneous
  Country: CA (occurrence: CA)
  Receive Date: 20140620
  Receipt Date: 20140620
  Transmission Date: 20141212
  Serious: Yes (Other)
  Sender: FDA-Public Use
  Company Number: CA-PFIZER INC-2014168781

PATIENT
  Age: 71 Year
  Sex: Female
  Weight: 63.49 kg

DRUGS (5)
  1. CELEBREX [Suspect]
     Dosage: 200MG CAPSULE AT 1 DOSE FORM ONCE DAILY
     Route: 048
  2. PRADAXA [Suspect]
     Dosage: 2 DOSE FORM ONCE DAILY
     Route: 048
  3. ARIMIDEX [Concomitant]
     Dosage: 1 MG
  4. CRESTOR [Concomitant]
     Dosage: UNK
  5. SYNTHROID [Concomitant]
     Dosage: UNK

REACTIONS (9)
  - Aphagia [Recovered/Resolved]
  - Asthenia [Recovered/Resolved]
  - Faeces discoloured [Recovered/Resolved]
  - Fatigue [Recovered/Resolved]
  - Gastrointestinal haemorrhage [Recovered/Resolved]
  - Haemorrhage [Recovered/Resolved]
  - Arthropathy [Recovered/Resolved]
  - Nausea [Recovered/Resolved]
  - Weight decreased [Recovered/Resolved]
